FAERS Safety Report 16881731 (Version 4)
Quarter: 2020Q1

REPORT INFORMATION
  Report Type: Report from Study
  Country: US (occurrence: US)
  Receive Date: 20191003
  Receipt Date: 20200114
  Transmission Date: 20200409
  Serious: Yes (Death)
  Sender: FDA-Public Use
  Company Number: US-JNJFOC-20190928084

PATIENT
  Age: 22 Year
  Sex: Male
  Weight: 89.89 kg

DRUGS (7)
  1. LAMICTAL [Concomitant]
     Active Substance: LAMOTRIGINE
     Indication: MAJOR DEPRESSION
  2. NEURONTIN [Concomitant]
     Active Substance: GABAPENTIN
     Indication: GENERALISED ANXIETY DISORDER
     Dosage: 1 TABLET UP TO 4 TIMES DAILY AS NEEDED
     Route: 048
  3. SPRAVATO [Suspect]
     Active Substance: ESKETAMINE
     Indication: DEPRESSION
     Dates: start: 20190611, end: 20190618
  4. SPRAVATO [Suspect]
     Active Substance: ESKETAMINE
     Dates: start: 20190618, end: 20190807
  5. ATARAX [Concomitant]
     Active Substance: HYDROXYZINE HYDROCHLORIDE
     Indication: GENERALISED ANXIETY DISORDER
     Dosage: 1 TABLET THREE TIMES DAILY AS NEEDED
  6. SEROQUEL [Concomitant]
     Active Substance: QUETIAPINE FUMARATE
     Indication: INSOMNIA
     Dosage: REPORTED AS 50 MG TB24; 3 TABLETS EVERY MORNING
  7. PROZAC [Concomitant]
     Active Substance: FLUOXETINE HYDROCHLORIDE
     Indication: MAJOR DEPRESSION

REACTIONS (2)
  - Completed suicide [Fatal]
  - Product dose omission [Unknown]

NARRATIVE: CASE EVENT DATE: 20190814
